FAERS Safety Report 9649537 (Version 2)
Quarter: 2013Q4

REPORT INFORMATION
  Report Type: Spontaneous
  Country: US (occurrence: US)
  Receive Date: 20131028
  Receipt Date: 20131115
  Transmission Date: 20140711
  Serious: Yes (Disabling)
  Sender: FDA-Public Use
  Company Number: US-PFIZER INC-2013307531

PATIENT
  Age: 47 Year
  Sex: Female
  Weight: 62.6 kg

DRUGS (2)
  1. EFFEXOR XR [Suspect]
     Indication: DEPRESSED MOOD
     Dosage: 75 MG, DAILY
  2. EFFEXOR XR [Suspect]
     Dosage: 150 MG, DAILY
     Dates: start: 2012

REACTIONS (2)
  - Carpal tunnel syndrome [Unknown]
  - Arthropathy [Unknown]
